FAERS Safety Report 5960295-X (Version None)
Quarter: 2008Q4

REPORT INFORMATION
  Report Type: 
  Country: None (occurrence: None)
  Receive Date: 20081120
  Receipt Date: 20081110
  Transmission Date: 20090506
  Serious: Yes (Death, Hospitalization, Other)
  Sender: FDA-Public Use
  Company Number: US-AVENTIS-200513491US

PATIENT
  Sex: Male
  Weight: 67.27 kg

DRUGS (7)
  1. KETEK [Suspect]
     Indication: SINUSITIS
     Dosage: DOSE: UNK; FREQUENCY: EVERY 6 TO 8 HOURS
  2. KETEK [Suspect]
     Indication: BRONCHITIS
     Dosage: DOSE: UNK; FREQUENCY: EVERY 6 TO 8 HOURS
  3. TYLENOL (CAPLET) [Concomitant]
     Dosage: DOSE: UNK
  4. ALCOHOL [Concomitant]
     Dosage: DOSE: UNKNOWN
  5. UNKNOWN DRUG [Concomitant]
     Dosage: DOSE: UNKNOWN
  6. ADVIL [Concomitant]
     Dosage: DOSE: UNK
  7. KEFLEX [Concomitant]

REACTIONS (52)
  - ABDOMINAL DISTENSION [None]
  - ABDOMINAL SYMPTOM [None]
  - ABDOMINAL TENDERNESS [None]
  - ACTIVATED PARTIAL THROMBOPLASTIN TIME PROLONGED [None]
  - ACUTE RESPIRATORY DISTRESS SYNDROME [None]
  - ALANINE AMINOTRANSFERASE INCREASED [None]
  - ANOREXIA [None]
  - ANURIA [None]
  - ASCITES [None]
  - ASPARTATE AMINOTRANSFERASE INCREASED [None]
  - ASTHENIA [None]
  - BLOOD BILIRUBIN INCREASED [None]
  - BLOOD CULTURE POSITIVE [None]
  - BLOOD GLUCOSE DECREASED [None]
  - CARDIAC ARREST [None]
  - CARDIOPULMONARY FAILURE [None]
  - DILATATION VENTRICULAR [None]
  - FLATULENCE [None]
  - GASTRITIS [None]
  - HAEMATEMESIS [None]
  - HEPATIC ENZYME INCREASED [None]
  - HEPATIC FAILURE [None]
  - HEPATIC NECROSIS [None]
  - HEPATITIS [None]
  - HEPATOMEGALY [None]
  - HYPERHIDROSIS [None]
  - HYPONATRAEMIA [None]
  - HYPOTENSION [None]
  - INTENTIONAL DRUG MISUSE [None]
  - INTERNATIONAL NORMALISED RATIO INCREASED [None]
  - JAUNDICE [None]
  - MALAISE [None]
  - MELAENA [None]
  - METABOLIC ACIDOSIS [None]
  - MITRAL VALVE INCOMPETENCE [None]
  - MULTI-ORGAN FAILURE [None]
  - MYOCARDITIS [None]
  - NAUSEA [None]
  - PAIN [None]
  - PLEURAL EFFUSION [None]
  - PNEUMONIA [None]
  - PULMONARY OEDEMA [None]
  - PYREXIA [None]
  - RENAL FAILURE ACUTE [None]
  - RENAL TUBULAR NECROSIS [None]
  - SHOCK [None]
  - SOMNOLENCE [None]
  - TACHYCARDIA [None]
  - TACHYPNOEA [None]
  - TRICUSPID VALVE INCOMPETENCE [None]
  - VOMITING [None]
  - WEIGHT DECREASED [None]
